FAERS Safety Report 6681694-7 (Version None)
Quarter: 2010Q2

REPORT INFORMATION
  Report Type: 
  Country: None (occurrence: None)
  Receive Date: 20100414
  Receipt Date: 20100402
  Transmission Date: 20101027
  Serious: Yes (Other)
  Sender: FDA-Public Use
  Company Number: SI-PFIZER INC-2010043216

PATIENT
  Sex: Female

DRUGS (3)
  1. LYRICA [Suspect]
     Indication: CHEST PAIN
     Dosage: 225 MG, 1X/DAY
     Route: 048
     Dates: start: 20100120, end: 20100301
  2. VOLTAREN [Concomitant]
  3. PARACETAMOL [Concomitant]

REACTIONS (4)
  - BLUE TOE SYNDROME [None]
  - HEART RATE INCREASED [None]
  - MENSTRUAL DISORDER [None]
  - OEDEMA PERIPHERAL [None]
